FAERS Safety Report 4333257-6 (Version None)
Quarter: 2004Q2

REPORT INFORMATION
  Report Type: 
  Country: None (occurrence: None)
  Receive Date: 20040401
  Receipt Date: 20040325
  Transmission Date: 20050107
  Serious: Yes (Hospitalization)
  Sender: FDA-Public Use
  Company Number: 2004UW05903

PATIENT
  Age: 45 Year
  Sex: Female

DRUGS (2)
  1. SEROQUEL [Suspect]
     Dosage: 25 MG PO
     Route: 048
  2. PROZAC [Concomitant]

REACTIONS (2)
  - COMA [None]
  - NEUROLEPTIC MALIGNANT SYNDROME [None]
